FAERS Safety Report 8506419-1 (Version None)
Quarter: 2012Q3

REPORT INFORMATION
  Report Type: 
  Country: None (occurrence: None)
  Receive Date: 20120712
  Receipt Date: 20120709
  Transmission Date: 20120928
  Serious: Yes (Other)
  Sender: FDA-Public Use
  Company Number: IT-PFIZER INC-2011209323

PATIENT
  Age: 14 Year
  Sex: Female

DRUGS (6)
  1. DIFLUCAN [Concomitant]
  2. DECADRON [Concomitant]
  3. VINCRISTINE SULFATE [Suspect]
     Indication: ACUTE LYMPHOCYTIC LEUKAEMIA
     Dosage: 2 MG, CYCLIC
     Route: 042
     Dates: start: 20110623
  4. ZOVIRAX [Concomitant]
  5. RANITIDINE HCL [Concomitant]
  6. IDARUBICIN HYDROCHLORIDE [Suspect]
     Indication: ACUTE LYMPHOCYTIC LEUKAEMIA
     Dosage: 8 MG, CYCLIC
     Route: 042
     Dates: start: 20110623

REACTIONS (1)
  - HAEMATOCHEZIA [None]
